FAERS Safety Report 9365005 (Version 1)
Quarter: 2013Q2

REPORT INFORMATION
  Report Type: Spontaneous
  Country: US (occurrence: US)
  Receive Date: 20130624
  Receipt Date: 20130624
  Transmission Date: 20140414
  Serious: No
  Sender: FDA-Public Use
  Company Number: US-PFIZER INC-2013186976

PATIENT
  Age: 39 Year
  Sex: Female
  Weight: 90.7 kg

DRUGS (1)
  1. NEURONTIN [Suspect]
     Indication: MENTAL DISORDER
     Dosage: 300 MG, 4X/DAY
     Dates: start: 201304

REACTIONS (8)
  - Dyspepsia [Unknown]
  - Oedema [Recovered/Resolved]
  - Dysphonia [Unknown]
  - Asthma [Unknown]
  - Local swelling [Unknown]
  - Joint swelling [Unknown]
  - Constipation [Unknown]
  - Diarrhoea [Unknown]
